FAERS Safety Report 7579036-8 (Version None)
Quarter: 2011Q2

REPORT INFORMATION
  Report Type: 
  Country: None (occurrence: None)
  Receive Date: 20110628
  Receipt Date: 20110623
  Transmission Date: 20111010
  Serious: Yes (Death, Hospitalization)
  Sender: FDA-Public Use
  Company Number: PHHY2011NO55730

PATIENT
  Sex: Male

DRUGS (9)
  1. DIGITOXIN TAB [Concomitant]
     Indication: ATRIAL FIBRILLATION
     Route: 048
  2. VALSARTAN  AND HYDROCHLOROTHIAZIDE [Concomitant]
     Indication: HYPERTENSION
     Dosage: 160/12,5
     Route: 048
  3. BISOPROLOL FUMARATE [Concomitant]
     Dosage: 50 MG, UNK
  4. VINORELBINE [Suspect]
     Dosage: 50 MG, UNK
     Dates: start: 20110503, end: 20110510
  5. BISOPROLOL FUMARATE [Concomitant]
     Indication: ATRIAL FIBRILLATION
     Dosage: UNK MG, QD
     Route: 048
  6. TAMSULOSIN HCL [Concomitant]
     Indication: BENIGN PROSTATIC HYPERPLASIA
     Route: 048
  7. VENTOLIN [Concomitant]
     Indication: CHRONIC OBSTRUCTIVE PULMONARY DISEASE
     Route: 048
  8. ATROVENT [Concomitant]
     Indication: CHRONIC OBSTRUCTIVE PULMONARY DISEASE
     Route: 048
  9. VINORELBINE [Suspect]
     Indication: NON-SMALL CELL LUNG CANCER
     Dosage: UNK
     Route: 041

REACTIONS (8)
  - DEATH [None]
  - PSYCHOTIC DISORDER [None]
  - FALL [None]
  - PULSE ABSENT [None]
  - INSOMNIA [None]
  - APNOEA [None]
  - DYSPNOEA [None]
  - LARYNGEAL OEDEMA [None]
